FAERS Safety Report 5674843-0 (Version None)
Quarter: 2008Q1

REPORT INFORMATION
  Report Type: 
  Country: None (occurrence: None)
  Receive Date: 20080320
  Receipt Date: 20080310
  Transmission Date: 20080703
  Serious: Yes (Other)
  Sender: FDA-Public Use
  Company Number: US-PFIZER INC-2008022451

PATIENT
  Sex: Female
  Weight: 72.727 kg

DRUGS (6)
  1. CELEBREX [Suspect]
     Indication: SPINAL COLUMN STENOSIS
     Dates: start: 20050101, end: 20080101
  2. CELEBREX [Interacting]
     Indication: OSTEOARTHRITIS
  3. LEXAPRO [Interacting]
     Indication: DEPRESSION
  4. TYLENOL (CAPLET) [Concomitant]
  5. LIPITOR [Concomitant]
  6. FOSAMAX [Concomitant]

REACTIONS (3)
  - DRUG INTERACTION [None]
  - RASH ERYTHEMATOUS [None]
  - WEIGHT DECREASED [None]
